FAERS Safety Report 9016661 (Version 1)
Quarter: 2013Q1

REPORT INFORMATION
  Report Type: Spontaneous
  Country: US (occurrence: US)
  Receive Date: 20130117
  Receipt Date: 20130117
  Transmission Date: 20140127
  Serious: No
  Sender: FDA-Public Use
  Company Number: US-009507513-1301USA004220

PATIENT
  Sex: Male

DRUGS (1)
  1. AZASITE [Suspect]
     Dosage: ONE DROP EACH EYE TWICE DAILY FOR 1 WEEK THEN ONE DROP EACH EYE DAILY FOR THREE WEEKS
     Route: 047
     Dates: start: 20121227

REACTIONS (4)
  - Inappropriate schedule of drug administration [Unknown]
  - Drug prescribing error [Unknown]
  - No adverse event [Unknown]
  - Product quality issue [Unknown]
